FAERS Safety Report 7747497-7 (Version None)
Quarter: 2011Q3

REPORT INFORMATION
  Report Type: 
  Country: None (occurrence: None)
  Receive Date: 20110909
  Receipt Date: 20100708
  Transmission Date: 20111222
  Serious: Yes (Hospitalization)
  Sender: FDA-Public Use
  Company Number: GER/USA/10/0014128

PATIENT
  Age: 59 Year
  Sex: Male

DRUGS (10)
  1. CLOPIDOGREL [Suspect]
     Indication: CORONARY ARTERY DISEASE
     Dosage: 600 MG, 1 IN 1 D
  2. SIMVASTATIN [Concomitant]
  3. HEPARIN [Concomitant]
  4. EPTIFIBATIDE [Concomitant]
  5. ASPIRIN [Concomitant]
  6. METOPROLOL TARTRATE [Concomitant]
  7. OMEPRAZOLE [Concomitant]
  8. LISINOPRIL [Concomitant]
  9. AMLODIPINE [Concomitant]
  10. WARFARIN SODIUM [Concomitant]

REACTIONS (5)
  - CHEST PAIN [None]
  - ELECTROCARDIOGRAM ST SEGMENT ELEVATION [None]
  - THROMBOSIS IN DEVICE [None]
  - DRUG RESISTANCE [None]
  - CORONARY ARTERY STENOSIS [None]
